FAERS Safety Report 7911627-4 (Version None)
Quarter: 2011Q4

REPORT INFORMATION
  Report Type: 
  Country: None (occurrence: None)
  Receive Date: 20111114
  Receipt Date: 20111114
  Transmission Date: 20120403
  Serious: Yes (Life-Threatening, Other)
  Sender: FDA-Public Use
  Company Number: None

PATIENT
  Age: 54 Year
  Sex: Male
  Weight: 88.45 kg

DRUGS (1)
  1. TERBINAFINE HCL [Suspect]
     Indication: ONYCHOMYCOSIS
     Dosage: ONE PILL
     Route: 048
     Dates: start: 20111102, end: 20111108

REACTIONS (4)
  - PRURITUS [None]
  - BURNING SENSATION [None]
  - BLISTER [None]
  - RASH ERYTHEMATOUS [None]
